FAERS Safety Report 4779561-9 (Version None)
Quarter: 2005Q3

REPORT INFORMATION
  Report Type: 
  Country: None (occurrence: None)
  Receive Date: 20050923
  Receipt Date: 20050915
  Transmission Date: 20060218
  Serious: Yes (Other)
  Sender: FDA-Public Use
  Company Number: HQWYE537519SEP05

PATIENT
  Age: 50 Year
  Sex: Female
  Weight: 47.67 kg

DRUGS (5)
  1. PROTONIX [Suspect]
     Indication: CROHN'S DISEASE
     Dosage: 160 MG 1X PER 1 DAY, ORAL
     Route: 048
     Dates: start: 20050301
  2. PROTONIX [Suspect]
     Indication: OESOPHAGEAL ULCER
     Dosage: 160 MG 1X PER 1 DAY, ORAL
     Route: 048
     Dates: start: 20050301
  3. CIPRO [Concomitant]
  4. DOXYCYCLINE [Concomitant]
  5. DEXAMETHASONE [Concomitant]

REACTIONS (3)
  - ACIDOSIS [None]
  - DRUG INTOLERANCE [None]
  - PCO2 DECREASED [None]
